FAERS Safety Report 8308694-5 (Version None)
Quarter: 2012Q2

REPORT INFORMATION
  Report Type: 
  Country: None (occurrence: None)
  Receive Date: 20120420
  Receipt Date: 20120406
  Transmission Date: 20120825
  Serious: Yes (Hospitalization)
  Sender: FDA-Public Use
  Company Number: ACO_28571_2011

PATIENT
  Age: 62 Year
  Sex: Male
  Weight: 67 kg

DRUGS (17)
  1. LOVENOX [Concomitant]
  2. CRESTOR [Concomitant]
  3. AMANTADINE HCL [Concomitant]
  4. CYCLOBENZAPIRNE (CYCLOBENZAPRINE) [Concomitant]
  5. HUMULIN (INSULIN HUMAN INJECTION, ISOPHANE) [Concomitant]
  6. NITROGLYCERIN [Concomitant]
  7. HYDROCHLOROTHIAZIDE [Concomitant]
  8. PLAVIX [Concomitant]
  9. DILTIAZEM [Concomitant]
  10. DITROPAN [Concomitant]
  11. METFORMIN HCL [Concomitant]
  12. FAMPRIDINE-SR (FAMPRIDINE)TABLET [Suspect]
     Indication: MULTIPLE SCLEROSIS
     Dosage: UNK
     Dates: start: 20060622
  13. ASPIRIN [Concomitant]
  14. AVONEX [Concomitant]
  15. RAMIPRIL [Concomitant]
  16. DIFLUNISAL [Concomitant]
  17. BACLOFEN [Concomitant]

REACTIONS (7)
  - FALL [None]
  - CONDITION AGGRAVATED [None]
  - MULTIPLE SCLEROSIS [None]
  - ANGINA UNSTABLE [None]
  - ELECTROCARDIOGRAM ST SEGMENT ABNORMAL [None]
  - DYSPNOEA [None]
  - CORONARY ARTERY DISEASE [None]
